FAERS Safety Report 16240007 (Version 2)
Quarter: 2019Q3

REPORT INFORMATION
  Report Type: Spontaneous
  Country: US (occurrence: US)
  Receive Date: 20190425
  Receipt Date: 20190722
  Transmission Date: 20191004
  Serious: No
  Sender: FDA-Public Use
  Company Number: US-ALLERGAN-1841830US

PATIENT
  Age: 83 Year
  Sex: Male

DRUGS (1)
  1. TRELSTAR [Suspect]
     Active Substance: TRIPTORELIN PAMOATE
     Indication: PROSTATE CANCER
     Dosage: 22.5 MG, SINGLE
     Route: 065
     Dates: start: 20180828, end: 20180828

REACTIONS (2)
  - Product administration interrupted [Unknown]
  - Syringe issue [Unknown]

NARRATIVE: CASE EVENT DATE: 20180828
